FAERS Safety Report 5469636-3 (Version None)
Quarter: 2007Q3

REPORT INFORMATION
  Report Type: 
  Country: None (occurrence: None)
  Receive Date: 20070926
  Receipt Date: 20070926
  Transmission Date: 20080115
  Serious: No
  Sender: FDA-Public Use
  Company Number: None

PATIENT
  Age: 78 Year
  Sex: Male

DRUGS (1)
  1. HEPARIN [Suspect]
     Indication: ANTICOAGULANT THERAPY
     Dates: start: 20070620, end: 20070624

REACTIONS (1)
  - THROMBOCYTOPENIA [None]
